FAERS Safety Report 5507272-0 (Version None)
Quarter: 2007Q4

REPORT INFORMATION
  Report Type: 
  Country: None (occurrence: None)
  Receive Date: 20071106
  Receipt Date: 20071024
  Transmission Date: 20080405
  Serious: Yes (Other)
  Sender: FDA-Public Use
  Company Number: PHEH2007US14263

PATIENT
  Age: 74 Year
  Sex: Female

DRUGS (4)
  1. METOPROLOL TARTRATE [Suspect]
     Route: 065
  2. TOPROL-XL [Suspect]
     Indication: HYPERTENSION
  3. VERAPAMIL HYDROCHLORIDE [Suspect]
     Route: 048
  4. AVAPRO [Suspect]
     Indication: HYPERTENSION
     Dosage: UNK, UNK
     Route: 065

REACTIONS (2)
  - CEREBROVASCULAR ACCIDENT [None]
  - HYPERTENSION [None]
